FAERS Safety Report 7564945-6 (Version None)
Quarter: 2011Q2

REPORT INFORMATION
  Report Type: 
  Country: None (occurrence: None)
  Receive Date: 20110622
  Receipt Date: 20110615
  Transmission Date: 20111010
  Serious: Yes (Other)
  Sender: FDA-Public Use
  Company Number: US-MYLANLABS-2011S1004144

PATIENT
  Age: 27 Year
  Sex: Male

DRUGS (11)
  1. DOCUSATE [Concomitant]
  2. HALOPERIDOL [Concomitant]
  3. FLUVOXAMINE MALEATE [Concomitant]
  4. DIVALPROEX SODIUM [Concomitant]
  5. LOVAZA [Concomitant]
  6. PROPRANOLOL [Concomitant]
  7. BENZTROPINE MESYLATE [Concomitant]
  8. CLOZAPINE [Suspect]
     Indication: SCHIZOPHRENIA
     Dates: end: 20110318
  9. CLOZAPINE [Suspect]
     Dates: start: 20110419
  10. AMLODIPINE [Concomitant]
  11. CLOZAPINE [Suspect]

REACTIONS (1)
  - GRANULOCYTOPENIA [None]
